FAERS Safety Report 5205465-3 (Version None)
Quarter: 2006Q4

REPORT INFORMATION
  Report Type: 
  Country: None (occurrence: None)
  Receive Date: 20061027
  Receipt Date: 20051024
  Transmission Date: 20070319
  Serious: Yes (Hospitalization, Other)
  Sender: FDA-Public Use
  Company Number: HQWYE041025OCT04

PATIENT
  Age: 59 Year
  Sex: Female
  Weight: 68.55 kg

DRUGS (6)
  1. PREMARIN [Suspect]
     Indication: HORMONE REPLACEMENT THERAPY
     Dosage: 0.625 MG DAILY, ORAL
     Route: 048
     Dates: start: 19870101, end: 19970101
  2. PREMARIN [Suspect]
     Indication: HOT FLUSH
     Dosage: 0.625 MG DAILY, ORAL
     Route: 048
     Dates: start: 19870101, end: 19970101
  3. PREMARIN [Suspect]
     Indication: MOOD SWINGS
     Dosage: 0.625 MG DAILY, ORAL
     Route: 048
     Dates: start: 19870101, end: 19970101
  4. PROVERA [Suspect]
     Indication: HORMONE REPLACEMENT THERAPY
     Dosage: 2.5 MG DAILY, ORAL
     Route: 048
     Dates: start: 19870101, end: 19970101
  5. PROVERA [Suspect]
     Indication: HOT FLUSH
     Dosage: 2.5 MG DAILY, ORAL
     Route: 048
     Dates: start: 19870101, end: 19970101
  6. PROVERA [Suspect]
     Indication: MOOD SWINGS
     Dosage: 2.5 MG DAILY, ORAL
     Route: 048
     Dates: start: 19870101, end: 19970101

REACTIONS (1)
  - BREAST CANCER [None]
